FAERS Safety Report 8716221 (Version 2)
Quarter: 2013Q1

REPORT INFORMATION
  Report Type: Report from Study
  Country: JP (occurrence: JP)
  Receive Date: 20120810
  Receipt Date: 20130213
  Transmission Date: 20140127
  Serious: Yes (Hospitalization)
  Sender: FDA-Public Use
  Company Number: JP-009507513-1207JPN007964

PATIENT
  Age: 54 Year
  Sex: Male
  Weight: 88 kg

DRUGS (9)
  1. PEGINTRON [Suspect]
     Indication: CHRONIC HEPATITIS C
     Dosage: 1.5MCG/KG/WEEK
     Route: 058
     Dates: start: 20120208, end: 20120718
  2. REBETOL [Suspect]
     Indication: CHRONIC HEPATITIS C
     Route: 048
     Dates: start: 20120208, end: 20120228
  3. REBETOL [Suspect]
     Dosage: 800 MG, QD
     Route: 048
     Dates: start: 20120229, end: 20120403
  4. REBETOL [Suspect]
     Dosage: 1000 MG, QD
     Route: 048
     Dates: start: 20120404, end: 20120505
  5. REBETOL [Suspect]
     Dosage: 800 MG, QD
     Route: 048
     Dates: start: 20120509, end: 20120529
  6. REBETOL [Suspect]
     Dosage: 1000 MG, QD
     Route: 048
     Dates: start: 20120530, end: 20120724
  7. TELAVIC [Suspect]
     Indication: CHRONIC HEPATITIS C
     Route: 048
     Dates: start: 20120208
  8. TAKEPRON [Concomitant]
     Indication: GASTROOESOPHAGEAL REFLUX DISEASE
     Dosage: 15 MG, QD
     Route: 048
     Dates: start: 20120501, end: 20120512
  9. LOXONIN [Concomitant]
     Indication: SKELETAL INJURY
     Dosage: 180 MG, QD
     Route: 048
     Dates: start: 20120501, end: 20120512

REACTIONS (6)
  - Erythema [Recovering/Resolving]
  - Pruritus [None]
  - Platelet count decreased [None]
  - Anaemia [None]
  - Haemoglobin decreased [None]
  - Hyperuricaemia [None]
